FAERS Safety Report 9297094 (Version 1)
Quarter: 2013Q2

REPORT INFORMATION
  Report Type: Spontaneous
  Country: US (occurrence: US)
  Receive Date: 20130519
  Receipt Date: 20130519
  Transmission Date: 20140414
  Serious: No
  Sender: FDA-Public Use
  Company Number: US-ALLERGAN-1305159US

PATIENT
  Age: 62 Year
  Sex: Female

DRUGS (6)
  1. LASTACAFT [Suspect]
     Indication: EYE ALLERGY
     Dosage: 2 GTT, BID
     Route: 047
     Dates: start: 201210
  2. METOPROLOL [Concomitant]
     Indication: PRODUCT USED FOR UNKNOWN INDICATION
     Dosage: 100 MG, QD
     Route: 048
  3. CONDRITON [Concomitant]
     Indication: PRODUCT USED FOR UNKNOWN INDICATION
     Route: 048
  4. REFRESH EYE ITCH RELIEF [Concomitant]
     Indication: DRY EYE
     Dosage: UNK UNK, QAM
     Route: 047
  5. ALLEGRA                            /01314201/ [Concomitant]
     Indication: SEASONAL ALLERGY
     Dosage: UNK UNK, PRN
     Route: 048
  6. BEPREVE [Concomitant]
     Indication: EYE ALLERGY
     Dosage: UNK
     Route: 047

REACTIONS (5)
  - Inappropriate schedule of drug administration [Unknown]
  - Drug hypersensitivity [Recovered/Resolved]
  - Ocular hyperaemia [Unknown]
  - Ocular hyperaemia [Recovered/Resolved]
  - Eye pruritus [Recovered/Resolved]
